FAERS Safety Report 4802539-3 (Version None)
Quarter: 2005Q4

REPORT INFORMATION
  Report Type: 
  Country: None (occurrence: None)
  Receive Date: 20051013
  Receipt Date: 20050927
  Transmission Date: 20060501
  Serious: Yes (Death)
  Sender: FDA-Public Use
  Company Number: 2005S1008344

PATIENT
  Age: 62 Year
  Sex: Female

DRUGS (9)
  1. CLOZAPINE [Suspect]
     Indication: SCHIZOPHRENIA
     Dosage: 50 MG; HS; PO
     Route: 048
     Dates: start: 20040901, end: 20050701
  2. CLOZAPINE [Suspect]
     Dosage: 300 MG; HS; PO
     Route: 048
     Dates: start: 20040901, end: 20050701
  3. BENZTROPINE MESYLATE [Concomitant]
  4. ALPRAZOLAM [Concomitant]
  5. HALOPERIDOL [Concomitant]
  6. IBUPROFEN [Concomitant]
  7. DOCUSATE SODIUM [Concomitant]
  8. ASPIRIN [Concomitant]
  9. MORPHINE [Concomitant]

REACTIONS (1)
  - NEOPLASM MALIGNANT [None]
